FAERS Safety Report 7107512-0 (Version None)
Quarter: 2010Q4

REPORT INFORMATION
  Report Type: 
  Country: None (occurrence: None)
  Receive Date: 20101117
  Receipt Date: 20101103
  Transmission Date: 20110411
  Serious: Yes (Other)
  Sender: FDA-Public Use
  Company Number: US-RANBAXY-2010US-38561

PATIENT

DRUGS (1)
  1. PROCTOSOL-HC [Suspect]
     Indication: HAEMORRHOIDS
     Dosage: 2.5 % CREAM, UNK,
     Route: 065

REACTIONS (1)
  - ANAL HAEMORRHAGE [None]
